FAERS Safety Report 5567372-6 (Version None)
Quarter: 2007Q4

REPORT INFORMATION
  Report Type: 
  Country: None (occurrence: None)
  Receive Date: 20071214
  Receipt Date: 20071203
  Transmission Date: 20080405
  Serious: Yes (Death)
  Sender: FDA-Public Use
  Company Number: 2007AL005189

PATIENT
  Age: 65 Year
  Sex: Female

DRUGS (9)
  1. IBUPROFEN [Suspect]
     Dosage: 1200 MG; QD; PO
     Route: 048
     Dates: end: 20071023
  2. ASPIRIN [Concomitant]
  3. CHLORPROMAZINE [Concomitant]
  4. CO-CODAMOL [Concomitant]
  5. PROCYCLIDINE HYDROCHLORIDE 2MG TAB [Concomitant]
  6. DIAZEPAM [Concomitant]
  7. QUININE [Concomitant]
  8. FLUPHENAZINE [Concomitant]
  9. DOSULEPIN [Concomitant]

REACTIONS (2)
  - GASTROINTESTINAL HAEMORRHAGE [None]
  - PERFORATED ULCER [None]
